FAERS Safety Report 8784674 (Version 1)
Quarter: 2012Q4

REPORT INFORMATION
  Report Type: Spontaneous
  Country: US (occurrence: None)
  Receive Date: 20120907
  Receipt Date: 20120907
  Transmission Date: 20130627
  Serious: Yes (Other)
  Sender: FDA-Public Use
  Company Number: None

PATIENT

DRUGS (1)
  1. CLINDAMYCIN [Suspect]
     Indication: ROOT CANAL PROCEDURE
     Route: 048
     Dates: start: 20120524, end: 20120531

REACTIONS (7)
  - Amnesia [None]
  - Confusional state [None]
  - Balance disorder [None]
  - Headache [None]
  - Eye pain [None]
  - Photopsia [None]
  - Mental disorder [None]
